FAERS Safety Report 5035309-4 (Version None)
Quarter: 2006Q2

REPORT INFORMATION
  Report Type: 
  Country: None (occurrence: None)
  Receive Date: 20060622
  Receipt Date: 20060606
  Transmission Date: 20061013
  Serious: Yes (Other)
  Sender: FDA-Public Use
  Company Number: JP200604004045

PATIENT
  Age: 85 Year
  Sex: Female

DRUGS (7)
  1. EVISTA [Suspect]
     Indication: OSTEOPOROSIS
     Dosage: 60 MG, DAILY (1/D), ORAL
     Route: 048
     Dates: start: 20060405, end: 20060425
  2. PEON (ZALTOPROFEN) [Concomitant]
  3. BLOPRESS (CANDESARTAN CILEXETIL) [Concomitant]
  4. SIMVASTATIN [Concomitant]
  5. LANIRAPID (METILDIGOXIN) [Concomitant]
  6. ASPIRIN [Concomitant]
  7. TOWARAT (NIFEDIPINE) [Concomitant]

REACTIONS (2)
  - DEHYDRATION [None]
  - DIARRHOEA [None]
